FAERS Safety Report 4898374-0 (Version None)
Quarter: 2006Q1

REPORT INFORMATION
  Report Type: 
  Country: None (occurrence: None)
  Receive Date: 20060131
  Receipt Date: 20060131
  Transmission Date: 20060701
  Serious: Yes (Hospitalization)
  Sender: FDA-Public Use
  Company Number: None

PATIENT
  Age: 42 Year
  Sex: Male

DRUGS (3)
  1. ACCUTANE [Suspect]
     Indication: HIDRADENITIS
     Dosage: 3 WEEKS PO
     Route: 048
  2. DOXYCYINE [Concomitant]
  3. CLINDAMYCIN HCL [Concomitant]

REACTIONS (1)
  - SUICIDAL IDEATION [None]
